FAERS Safety Report 10057389 (Version 2)
Quarter: 2014Q2

REPORT INFORMATION
  Report Type: Spontaneous
  Country: US (occurrence: US)
  Receive Date: 20140403
  Receipt Date: 20140416
  Transmission Date: 20141212
  Serious: Yes (Hospitalization)
  Sender: FDA-Public Use
  Company Number: US-009507513-1404USA001941

PATIENT
  Age: 46 Year
  Sex: Male

DRUGS (2)
  1. AMITRIPTYLINE HYDROCHLORIDE [Suspect]
     Indication: FEELING ABNORMAL
     Dosage: TOOK LARGE DOSES
     Route: 048
  2. OPIATO [Concomitant]

REACTIONS (9)
  - Mental status changes [Unknown]
  - Intentional overdose [Unknown]
  - Compulsions [Unknown]
  - Off label use [Unknown]
  - Intentional product misuse [Unknown]
  - Euphoric mood [Unknown]
  - Confusional state [Unknown]
  - Hallucination [Unknown]
  - Time perception altered [Unknown]
